FAERS Safety Report 10229871 (Version 2)
Quarter: 2014Q2

REPORT INFORMATION
  Report Type: Report from Study
  Country: PL (occurrence: PL)
  Receive Date: 20140611
  Receipt Date: 20140611
  Transmission Date: 20141212
  Serious: Yes (Hospitalization)
  Sender: FDA-Public Use
  Company Number: PL-ROCHE-1388298

PATIENT
  Age: 73 Year
  Sex: Male

DRUGS (9)
  1. RITUXIMAB [Suspect]
     Indication: MALIGNANT LYMPHOID NEOPLASM
     Route: 065
     Dates: start: 200710, end: 200801
  2. CYCLOPHOSPHAMIDE [Suspect]
     Indication: MALIGNANT LYMPHOID NEOPLASM
     Route: 065
     Dates: start: 200710, end: 200801
  3. VINCRISTINE [Suspect]
     Indication: MALIGNANT LYMPHOID NEOPLASM
     Route: 065
     Dates: start: 200710, end: 200801
  4. PREDNISONE [Suspect]
     Indication: MALIGNANT LYMPHOID NEOPLASM
     Route: 065
     Dates: start: 200710, end: 200801
  5. OMEPRAZOLE [Concomitant]
     Route: 065
  6. BISOPROLOL [Concomitant]
     Route: 065
     Dates: start: 200711
  7. ACETYLSALICYLIC ACID [Concomitant]
     Route: 065
     Dates: start: 200711
  8. ALLOPURINOL [Concomitant]
     Route: 065
     Dates: start: 200711
  9. MEGESTROL [Concomitant]
     Route: 065
     Dates: start: 200801

REACTIONS (1)
  - Chronic obstructive pulmonary disease [Unknown]
